FAERS Safety Report 4268085-3 (Version None)
Quarter: 2004Q1

REPORT INFORMATION
  Report Type: 
  Country: None (occurrence: None)
  Receive Date: 20040109
  Receipt Date: 20040109
  Transmission Date: 20041129
  Serious: Yes (Other)
  Sender: FDA-Public Use
  Company Number: None

PATIENT
  Sex: Male
  Weight: 103.4201 kg

DRUGS (5)
  1. HYDROCHLOROTHIAZIDE [Suspect]
     Indication: HYPERTENSION
     Dosage: 125 QD ORAL
     Route: 048
     Dates: start: 20031023, end: 20031121
  2. ZOCOR [Concomitant]
  3. METAMUCIL-2 [Concomitant]
  4. IBUPROFEN [Concomitant]
  5. COMBIVENT [Concomitant]

REACTIONS (7)
  - BLISTER [None]
  - DERMATITIS CONTACT [None]
  - HYPERSENSITIVITY [None]
  - JOINT SWELLING [None]
  - PAIN [None]
  - RASH ERYTHEMATOUS [None]
  - RASH PRURITIC [None]
